FAERS Safety Report 5696856-5 (Version None)
Quarter: 2008Q2

REPORT INFORMATION
  Report Type: 
  Country: None (occurrence: None)
  Receive Date: 20080408
  Receipt Date: 20061212
  Transmission Date: 20081010
  Serious: No
  Sender: FDA-Public Use
  Company Number: US-BAYER-US-2006-039337

PATIENT
  Age: 57 Year
  Sex: Female
  Weight: 59 kg

DRUGS (2)
  1. YASMIN [Suspect]
     Indication: MENSTRUAL DISORDER
     Route: 048
     Dates: start: 20051201, end: 20060901
  2. ZIAC [Concomitant]

REACTIONS (1)
  - ALOPECIA [None]
